FAERS Safety Report 5101503-7 (Version None)
Quarter: 2006Q3

REPORT INFORMATION
  Report Type: 
  Country: None (occurrence: None)
  Receive Date: 20060911
  Receipt Date: 20060905
  Transmission Date: 20061208
  Serious: Yes (Disabling)
  Sender: FDA-Public Use
  Company Number: 2006AC01633

PATIENT
  Age: 58 Year
  Sex: Female
  Weight: 87 kg

DRUGS (6)
  1. SEROQUEL [Suspect]
     Indication: MANIA
     Route: 048
     Dates: start: 20050504
  2. SEROQUEL [Suspect]
     Route: 048
  3. DEPAKENE [Concomitant]
     Indication: BIPOLAR DISORDER
     Route: 048
     Dates: start: 20050504
  4. ETUMINE [Concomitant]
     Indication: MANIA
     Dosage: 40-70 MG DEPENDING ON NEED
     Route: 048
  5. LORMETAZEPAM [Concomitant]
     Indication: SLEEP DISORDER
     Route: 048
     Dates: start: 20060902
  6. ALLOPURINOL [Concomitant]
     Indication: GOUT
     Route: 048
     Dates: start: 20050504

REACTIONS (2)
  - GAIT DISTURBANCE [None]
  - PARKINSON'S DISEASE [None]
